FAERS Safety Report 8560502-3 (Version None)
Quarter: 2012Q3

REPORT INFORMATION
  Report Type: 
  Country: None (occurrence: None)
  Receive Date: 20120723
  Receipt Date: 20120709
  Transmission Date: 20120928
  Serious: Yes (Hospitalization)
  Sender: FDA-Public Use
  Company Number: FR-008847

PATIENT
  Age: 60 Year
  Sex: Male

DRUGS (2)
  1. PICOPREP (PICOPREP) 2 DF (NOT SPECIFIED) [Suspect]
     Indication: BOWEL PREPARATION
     Dosage: 2 DF ORAL
     Route: 048
     Dates: start: 20120704, end: 20120701
  2. FENOFIBRATE [Concomitant]

REACTIONS (4)
  - OEDEMA MOUTH [None]
  - PHARYNGEAL OEDEMA [None]
  - OPEN WOUND [None]
  - MYALGIA [None]
